FAERS Safety Report 8153794-6 (Version None)
Quarter: 2012Q1

REPORT INFORMATION
  Report Type: 
  Country: None (occurrence: None)
  Receive Date: 20120221
  Receipt Date: 20110919
  Transmission Date: 20120608
  Serious: Yes (Hospitalization)
  Sender: FDA-Public Use
  Company Number: DK-GLAXOSMITHKLINE-B0781995A

PATIENT
  Sex: Male

DRUGS (3)
  1. SIMVASTATIN [Concomitant]
  2. SUMATRIPTAN SUCCINATE [Suspect]
     Indication: HEADACHE
     Route: 065
     Dates: start: 20110901, end: 20110907
  3. METFORMIN HCL [Concomitant]

REACTIONS (4)
  - HYPERTENSION [None]
  - DIZZINESS [None]
  - NAUSEA [None]
  - HEADACHE [None]
